FAERS Safety Report 5031829-7 (Version None)
Quarter: 2006Q2

REPORT INFORMATION
  Report Type: 
  Country: None (occurrence: None)
  Receive Date: 20060619
  Receipt Date: 20060606
  Transmission Date: 20061013
  Serious: Yes (Hospitalization)
  Sender: FDA-Public Use
  Company Number: 110417ISR

PATIENT
  Age: 38 Year
  Sex: Male

DRUGS (8)
  1. GLATIRAMER ACETATE [Suspect]
     Indication: MULTIPLE SCLEROSIS
     Dosage: 20 MILLIGRAM
     Route: 058
     Dates: start: 20040622
  2. DOXYCYCLINE HYDROCHLORIDE [Concomitant]
  3. AMBROXOL HYDROCHLORIDE [Concomitant]
  4. BIBROCATHOL [Concomitant]
  5. HEXOL [Concomitant]
  6. DICLOFENAC [Concomitant]
  7. OMEPRAZOLE [Concomitant]
  8. PREDNISOLONE [Concomitant]

REACTIONS (9)
  - COGNITIVE DISORDER [None]
  - DEPRESSION [None]
  - ECONOMIC PROBLEM [None]
  - FATIGUE [None]
  - LOSS OF EMPLOYMENT [None]
  - MOOD ALTERED [None]
  - MULTIPLE SCLEROSIS [None]
  - PARAESTHESIA [None]
  - PSYCHOSOMATIC DISEASE [None]
